FAERS Safety Report 5425959-5 (Version None)
Quarter: 2007Q3

REPORT INFORMATION
  Report Type: 
  Country: None (occurrence: None)
  Receive Date: 20070824
  Receipt Date: 20070824
  Transmission Date: 20080115
  Serious: Yes (Life-Threatening)
  Sender: FDA-Public Use
  Company Number: None

PATIENT
  Age: 35 Year
  Sex: Male
  Weight: 40 kg

DRUGS (15)
  1. WARFARIN [Suspect]
     Indication: THROMBOSIS
     Dosage: VAR
     Dates: start: 20070612, end: 20070615
  2. VORICONAZOLE [Suspect]
     Indication: BRONCHOPULMONARY ASPERGILLOSIS
     Dosage: 200 MG PO BID -} 100MG PO BID
     Route: 048
     Dates: start: 20070608
  3. PREDNISONE [Concomitant]
  4. LANSOPRAZOLE [Concomitant]
  5. CACO3 [Concomitant]
  6. PANCRELIPASE [Concomitant]
  7. SSI [Concomitant]
  8. HUMALOG [Concomitant]
  9. M.V.I. [Concomitant]
  10. OXYCODONE HCL [Concomitant]
  11. MORPHINE [Concomitant]
  12. NYSTATIN [Concomitant]
  13. ALLOPURINOL [Concomitant]
  14. CEFEPIME [Concomitant]
  15. BACTRIM [Concomitant]

REACTIONS (5)
  - ACTIVATED PARTIAL THROMBOPLASTIN TIME PROLONGED [None]
  - HAEMOGLOBIN DECREASED [None]
  - HAEMOPTYSIS [None]
  - INTERNATIONAL NORMALISED RATIO INCREASED [None]
  - THROMBOSIS [None]
